FAERS Safety Report 4703026-3 (Version None)
Quarter: 2005Q2

REPORT INFORMATION
  Report Type: 
  Country: None (occurrence: None)
  Receive Date: 20050628
  Receipt Date: 20050628
  Transmission Date: 20051028
  Serious: Yes (Other)
  Sender: FDA-Public Use
  Company Number: None

PATIENT
  Age: 23 Year
  Sex: Female

DRUGS (4)
  1. APRESOLINE [Suspect]
     Indication: BLOOD PRESSURE INCREASED
     Dosage: 5 MG PRN IVP 1X ONLY
     Dates: start: 20050608
  2. MAXIDE 75/25 [Concomitant]
  3. TORADOL [Concomitant]
  4. ATIVAN [Concomitant]

REACTIONS (3)
  - HYPOAESTHESIA [None]
  - INJECTION SITE ERYTHEMA [None]
  - PRURITUS [None]
